FAERS Safety Report 13855765 (Version 1)
Quarter: 2017Q3

REPORT INFORMATION
  Report Type: Spontaneous
  Country: US (occurrence: US)
  Receive Date: 20170810
  Receipt Date: 20170810
  Transmission Date: 20171127
  Serious: No
  Sender: FDA-Public Use
  Company Number: US-VIFOR (INTERNATIONAL) INC.-VIT-2016-06069

PATIENT
  Sex: Female

DRUGS (1)
  1. VELTASSA [Suspect]
     Active Substance: PATIROMER
     Indication: PRODUCT USED FOR UNKNOWN INDICATION
     Route: 065

REACTIONS (11)
  - Blood pressure increased [Unknown]
  - Skin disorder [Unknown]
  - Dyspepsia [Recovered/Resolved]
  - Constipation [Unknown]
  - Gastrointestinal disorder [Unknown]
  - Emotional distress [Recovered/Resolved]
  - Blood potassium increased [Unknown]
  - Renal disorder [Unknown]
  - Malaise [Unknown]
  - Inappropriate schedule of drug administration [Unknown]
  - Cardiac disorder [Unknown]
